FAERS Safety Report 10261768 (Version 4)
Quarter: 2014Q4

REPORT INFORMATION
  Report Type: Spontaneous
  Country: JP (occurrence: JP)
  Receive Date: 20140626
  Receipt Date: 20141202
  Transmission Date: 20150528
  Serious: Yes (Hospitalization, Other)
  Sender: FDA-Public Use
  Company Number: JP-TAKEDA-2014TJP007459

PATIENT
  Age: 64 Year
  Sex: Male
  Weight: 57.9 kg

DRUGS (11)
  1. LIVALO [Suspect]
     Active Substance: PITAVASTATIN CALCIUM
     Indication: HYPERLIPIDAEMIA
     Dosage: 1 MG, QD
     Route: 048
     Dates: start: 201107, end: 20140203
  2. LOXONIN [Concomitant]
     Active Substance: LOXOPROFEN SODIUM
     Dosage: UNK
     Route: 065
     Dates: start: 201002
  3. NEUER [Concomitant]
     Active Substance: CETRAXATE HYDROCHLORIDE
     Dosage: UNK
     Route: 048
     Dates: start: 200405
  4. LANSAP [Suspect]
     Active Substance: AMOXICILLIN\CLARITHROMYCIN\LANSOPRAZOLE
     Indication: GASTRIC ULCER
     Dosage: 0.5 DF, BID
     Route: 048
     Dates: start: 20140127, end: 20140202
  5. RANITIDINE                         /00550802/ [Concomitant]
     Dosage: UNK
  6. MYSLEE [Concomitant]
     Active Substance: ZOLPIDEM TARTRATE
     Dosage: UNK
     Route: 048
     Dates: start: 200412
  7. PREDONINE [Concomitant]
     Active Substance: PREDNISOLONE\PREDNISOLONE ACETATE\PREDNISOLONE SODIUM SUCCINATE
     Dosage: UNK
     Route: 065
     Dates: end: 20140203
  8. RANITIDINE                         /00550802/ [Concomitant]
     Dosage: UNK
     Route: 065
     Dates: start: 201305
  9. FAMOTIDINE. [Concomitant]
     Active Substance: FAMOTIDINE
     Dosage: UNK
     Route: 065
     Dates: end: 20140203
  10. LANSAP [Suspect]
     Active Substance: AMOXICILLIN\CLARITHROMYCIN\LANSOPRAZOLE
     Indication: HELICOBACTER INFECTION
  11. ALLEGRA [Concomitant]
     Active Substance: FEXOFENADINE HYDROCHLORIDE
     Dosage: UNK
     Route: 048
     Dates: end: 20140203

REACTIONS (2)
  - Rhabdomyolysis [Recovered/Resolved]
  - Drug eruption [Unknown]

NARRATIVE: CASE EVENT DATE: 20140202
